FAERS Safety Report 5129560-2 (Version None)
Quarter: 2006Q4

REPORT INFORMATION
  Report Type: 
  Country: None (occurrence: None)
  Receive Date: 20061012
  Receipt Date: 20061004
  Transmission Date: 20070319
  Serious: Yes (Hospitalization, Other)
  Sender: FDA-Public Use
  Company Number: 2006-04-2275

PATIENT
  Age: 56 Year
  Sex: Female

DRUGS (6)
  1. PEG-INTRON [Suspect]
     Indication: DRUG USE FOR UNKNOWN INDICATION
     Dosage: SC
     Route: 058
     Dates: start: 20010101
  2. RIBAVIRIN [Suspect]
     Indication: DRUG USE FOR UNKNOWN INDICATION
     Dosage: 400 MG; BID; PO
     Route: 048
     Dates: start: 20060301, end: 20060701
  3. AVINZA [Concomitant]
  4. ZANAFLEX [Concomitant]
  5. EFFEXOR XR [Concomitant]
  6. AMBIEN [Concomitant]

REACTIONS (6)
  - DRUG HYPERSENSITIVITY [None]
  - ENCEPHALITIS [None]
  - LOSS OF CONSCIOUSNESS [None]
  - REACTION TO PRESERVATIVES [None]
  - REVERSIBLE POSTERIOR LEUKOENCEPHALOPATHY SYNDROME [None]
  - SURGERY [None]
